FAERS Safety Report 9603509 (Version 2)
Quarter: 2013Q4

REPORT INFORMATION
  Report Type: Report from Study
  Country: US (occurrence: US)
  Receive Date: 20131007
  Receipt Date: 20131018
  Transmission Date: 20140711
  Serious: Yes (Death, Hospitalization)
  Sender: FDA-Public Use
  Company Number: US-ABBVIE-13P-163-1153926-00

PATIENT
  Sex: Male
  Weight: 49.94 kg

DRUGS (6)
  1. HUMIRA [Suspect]
     Indication: COLITIS ULCERATIVE
     Dates: start: 201206, end: 201206
  2. HUMIRA [Suspect]
     Indication: CROHN^S DISEASE
  3. HUMIRA [Suspect]
     Dates: start: 2012, end: 201309
  4. WELLBUTRIN [Concomitant]
     Indication: DEPRESSION
     Dosage: UNKNOWN
  5. EFFEXOR [Concomitant]
     Indication: DEPRESSION
  6. SEROTONIN [Concomitant]
     Indication: INSOMNIA

REACTIONS (8)
  - Renal failure [Fatal]
  - Depression [Not Recovered/Not Resolved]
  - Crohn^s disease [Recovered/Resolved]
  - Drug ineffective [Not Recovered/Not Resolved]
  - Blood potassium increased [Unknown]
  - Hypotension [Unknown]
  - Dysstasia [Unknown]
  - Hypophagia [Unknown]
